FAERS Safety Report 5697759-2 (Version None)
Quarter: 2008Q2

REPORT INFORMATION
  Report Type: 
  Country: None (occurrence: None)
  Receive Date: 20080404
  Receipt Date: 20080404
  Transmission Date: 20081010
  Serious: No
  Sender: FDA-Public Use
  Company Number: None

PATIENT
  Age: 42 Year
  Sex: Male
  Weight: 99.3377 kg

DRUGS (1)
  1. PYLERA [Suspect]
     Indication: HELICOBACTER INFECTION
     Dosage: 3 CAPSULES TID PO
     Route: 048
     Dates: start: 20080310, end: 20080319

REACTIONS (2)
  - OROPHARYNGEAL PLAQUE [None]
  - TONGUE DISCOLOURATION [None]
